FAERS Safety Report 10047244 (Version 1)
Quarter: 2014Q1

REPORT INFORMATION
  Report Type: Spontaneous
  Country: US (occurrence: US)
  Receive Date: 20140331
  Receipt Date: 20140331
  Transmission Date: 20141002
  Serious: No
  Sender: FDA-Public Use
  Company Number: US-MYLANLABS-2013S1024139

PATIENT
  Sex: Female

DRUGS (2)
  1. FENTANYL TRANSDERMAL SYSTEM [Suspect]
     Indication: PAIN
     Dosage: Q2D
     Route: 062
  2. OXYCODONE [Concomitant]
     Indication: PAIN

REACTIONS (3)
  - Drug effect increased [Not Recovered/Not Resolved]
  - Drug clearance increased [Not Recovered/Not Resolved]
  - Feeling abnormal [Not Recovered/Not Resolved]
